FAERS Safety Report 18570529 (Version 4)
Quarter: 2021Q1

REPORT INFORMATION
  Report Type: Report from Study
  Country: US (occurrence: US)
  Receive Date: 20201202
  Receipt Date: 20210309
  Transmission Date: 20210419
  Serious: Yes (Other)
  Sender: FDA-Public Use
  Company Number: US-TAKEDA-2020TUS052919

PATIENT
  Age: 57 Year
  Sex: Female
  Weight: 57 kg

DRUGS (4)
  1. PEPTO?BISMOL [Concomitant]
     Active Substance: BISMUTH SUBSALICYLATE
     Indication: DIARRHOEA
     Dosage: UNK
  2. VEDOLIZUMAB [Suspect]
     Active Substance: VEDOLIZUMAB
     Indication: COLITIS MICROSCOPIC
     Dosage: 300 MILLIGRAM
     Route: 042
     Dates: start: 20201120
  3. ENTOCORT [Suspect]
     Active Substance: BUDESONIDE
     Indication: PRODUCT USED FOR UNKNOWN INDICATION
     Dosage: UNK
     Route: 065
  4. IMODIUM [Concomitant]
     Active Substance: LOPERAMIDE HYDROCHLORIDE
     Indication: DIARRHOEA
     Dosage: UNK

REACTIONS (5)
  - Fatigue [Recovered/Resolved]
  - Colitis microscopic [Unknown]
  - Off label use [Unknown]
  - Peripheral nerve neurostimulation [Unknown]
  - Arthralgia [Unknown]

NARRATIVE: CASE EVENT DATE: 20201120
